FAERS Safety Report 7484733-9 (Version None)
Quarter: 2011Q2

REPORT INFORMATION
  Report Type: 
  Country: None (occurrence: None)
  Receive Date: 20110517
  Receipt Date: 20101213
  Transmission Date: 20111010
  Serious: Yes (Other)
  Sender: FDA-Public Use
  Company Number: US-BAYER-2010-004718

PATIENT
  Age: 11 Year
  Sex: Male

DRUGS (1)
  1. KOGENATE FS [Suspect]
     Indication: FACTOR VIII DEFICIENCY
     Dosage: UNK
     Dates: start: 20080101, end: 20090101

REACTIONS (2)
  - FACTOR VIII DEFICIENCY [None]
  - FACTOR VIII INHIBITION [None]
